FAERS Safety Report 6058288-X (Version None)
Quarter: 2009Q1

REPORT INFORMATION
  Report Type: 
  Country: None (occurrence: None)
  Receive Date: 20090130
  Receipt Date: 20090121
  Transmission Date: 20090719
  Serious: Yes (Other)
  Sender: FDA-Public Use
  Company Number: US-BAYER-US-2007-011614

PATIENT
  Sex: Male

DRUGS (9)
  1. MAGNEVIST [Suspect]
     Indication: NUCLEAR MAGNETIC RESONANCE IMAGING
     Dates: start: 20020122, end: 20020122
  2. OMNISCAN [Suspect]
     Indication: NUCLEAR MAGNETIC RESONANCE IMAGING
     Dates: start: 20020801, end: 20020801
  3. OMNISCAN [Suspect]
     Dates: start: 20030204, end: 20030204
  4. OMNISCAN [Suspect]
     Dates: start: 20031021, end: 20031021
  5. OMNISCAN [Suspect]
     Dates: start: 20040510, end: 20040510
  6. OMNISCAN [Suspect]
     Dates: start: 20041102, end: 20041102
  7. OMNISCAN [Suspect]
     Dates: start: 20050505, end: 20050505
  8. OMNISCAN [Suspect]
     Dates: start: 20051129, end: 20051129
  9. OMNISCAN [Suspect]
     Dates: start: 20060522, end: 20060522

REACTIONS (15)
  - ASTHENIA [None]
  - GAIT DISTURBANCE [None]
  - HYPOAESTHESIA [None]
  - JOINT RANGE OF MOTION DECREASED [None]
  - JOINT STIFFNESS [None]
  - MOBILITY DECREASED [None]
  - MOTOR DYSFUNCTION [None]
  - MUSCLE TIGHTNESS [None]
  - MUSCULOSKELETAL STIFFNESS [None]
  - NEPHROGENIC SYSTEMIC FIBROSIS [None]
  - PAIN [None]
  - PRURITUS GENERALISED [None]
  - SCAR [None]
  - SKIN DISCOLOURATION [None]
  - SKIN TIGHTNESS [None]
